FAERS Safety Report 5341171-2 (Version None)
Quarter: 2007Q2

REPORT INFORMATION
  Report Type: 
  Country: None (occurrence: None)
  Receive Date: 20070530
  Receipt Date: 20070515
  Transmission Date: 20071010
  Serious: Yes (Death, Hospitalization)
  Sender: FDA-Public Use
  Company Number: 2007-00237

PATIENT
  Age: 74 Year
  Sex: Male
  Weight: 65.8 kg

DRUGS (4)
  1. VELCADE [Suspect]
     Indication: TONGUE CANCER METASTATIC
     Dosage: 1.60 MG/M2, INTRAVENOUS
     Route: 042
     Dates: start: 20050915, end: 20051013
  2. TAXOTERE [Suspect]
     Indication: TONGUE CANCER METASTATIC
     Dosage: 74.00 MG, INTRAVENOUS
     Route: 042
     Dates: start: 20050922, end: 20051013
  3. MULTIVITAMINS (ERGOCALCIFEROL, PANTHENOL, NICOTINAMIDE, RIBOFLAVIN, TH [Concomitant]
  4. LEVOTHYROXINE SODIUM [Concomitant]

REACTIONS (7)
  - DISEASE PROGRESSION [None]
  - INADEQUATE ANALGESIA [None]
  - LUNG CONSOLIDATION [None]
  - PAIN [None]
  - PNEUMONIA [None]
  - PULMONARY HAEMORRHAGE [None]
  - PULMONARY OEDEMA [None]
